FAERS Safety Report 7176597-8 (Version None)
Quarter: 2010Q4

REPORT INFORMATION
  Report Type: 
  Country: None (occurrence: None)
  Receive Date: 20101220
  Receipt Date: 20101214
  Transmission Date: 20110411
  Serious: Yes (Other)
  Sender: FDA-Public Use
  Company Number: SE-PFIZER INC-2010172316

PATIENT
  Age: 63 Year
  Sex: Female

DRUGS (3)
  1. PREDNISOLONE [Suspect]
  2. DIAZEPAM [Concomitant]
     Indication: ANXIETY
     Dosage: UNK
  3. COZAAR [Concomitant]
     Dosage: UNK

REACTIONS (3)
  - CATARACT [None]
  - DEPRESSION [None]
  - THROMBOSIS [None]
